FAERS Safety Report 7656807-0 (Version None)
Quarter: 2011Q3

REPORT INFORMATION
  Report Type: 
  Country: None (occurrence: None)
  Receive Date: 20110802
  Receipt Date: 20110719
  Transmission Date: 20111222
  Serious: Yes (Death)
  Sender: FDA-Public Use
  Company Number: FK201101427

PATIENT
  Sex: Female
  Weight: 4 kg

DRUGS (1)
  1. LIDOCAINE HYDROCHLORIDE [Suspect]
     Indication: LOCAL ANAESTHESIA
     Dosage: INTRAVENOUS
     Route: 042
     Dates: start: 20110621

REACTIONS (3)
  - DEATH NEONATAL [None]
  - BRADYCARDIA NEONATAL [None]
  - MATERNAL DRUGS AFFECTING FOETUS [None]
